FAERS Safety Report 5362275-4 (Version None)
Quarter: 2007Q2

REPORT INFORMATION
  Report Type: 
  Country: None (occurrence: None)
  Receive Date: 20070619
  Receipt Date: 20070614
  Transmission Date: 20071010
  Serious: Yes (Other)
  Sender: FDA-Public Use
  Company Number: A0366179A

PATIENT
  Age: 52 Year
  Sex: Female
  Weight: 136.4 kg

DRUGS (6)
  1. AVANDIA [Suspect]
     Route: 048
     Dates: start: 20020301, end: 20020415
  2. INSULIN [Concomitant]
  3. CALAN [Concomitant]
  4. ANORETIC [Concomitant]
  5. LEVOTHROID [Concomitant]
  6. UNKNOWN-OTC MEDICATION [Concomitant]

REACTIONS (13)
  - ANAEMIA [None]
  - BRONCHITIS [None]
  - CARDIAC FAILURE CONGESTIVE [None]
  - CARDIOMEGALY [None]
  - DYSPNOEA [None]
  - GAIT DISTURBANCE [None]
  - LEFT ATRIAL DILATATION [None]
  - MITRAL VALVE INCOMPETENCE [None]
  - OEDEMA PERIPHERAL [None]
  - SOMNOLENCE [None]
  - SUICIDAL IDEATION [None]
  - VENTRICULAR HYPERTROPHY [None]
  - WEIGHT INCREASED [None]
